FAERS Safety Report 16571780 (Version 1)
Quarter: 2019Q3

REPORT INFORMATION
  Report Type: Spontaneous
  Country: US (occurrence: US)
  Receive Date: 20190715
  Receipt Date: 20190715
  Transmission Date: 20191004
  Serious: No
  Sender: FDA-Public Use
  Company Number: US-PFIZER INC-2018532701

PATIENT
  Age: 60 Year
  Sex: Male

DRUGS (2)
  1. CHANTIX [Suspect]
     Active Substance: VARENICLINE TARTRATE
     Indication: NICOTINE DEPENDENCE
  2. CHANTIX [Suspect]
     Active Substance: VARENICLINE TARTRATE
     Indication: POST LAMINECTOMY SYNDROME
     Dosage: 1 MG, UNK
     Route: 048

REACTIONS (1)
  - Drug ineffective [Unknown]
